FAERS Safety Report 14356648 (Version 1)
Quarter: 2018Q1

REPORT INFORMATION
  Report Type: Spontaneous
  Country: US (occurrence: US)
  Receive Date: 20180105
  Receipt Date: 20180105
  Transmission Date: 20180509
  Serious: Yes (Hospitalization)
  Sender: FDA-Public Use
  Company Number: US-ASTRAZENECA-2018SE00150

PATIENT
  Age: 71 Year
  Sex: Female

DRUGS (2)
  1. PRILOSEC OTC [Suspect]
     Active Substance: OMEPRAZOLE MAGNESIUM
     Route: 048
  2. PRILOSEC OTC [Suspect]
     Active Substance: OMEPRAZOLE MAGNESIUM
     Route: 048

REACTIONS (6)
  - Gastrointestinal haemorrhage [Unknown]
  - Gastric polyps [Unknown]
  - Fear [Unknown]
  - Blood count abnormal [Unknown]
  - Gastrointestinal pain [Unknown]
  - Malaise [Unknown]
